FAERS Safety Report 20526192 (Version 1)
Quarter: 2022Q1

REPORT INFORMATION
  Report Type: Spontaneous
  Country: US (occurrence: US)
  Receive Date: 20220228
  Receipt Date: 20220228
  Transmission Date: 20220424
  Serious: No
  Sender: FDA-Public Use
  Company Number: US-HRARD-2021000229

PATIENT
  Age: 28 Year
  Sex: Female

DRUGS (7)
  1. METYRAPONE [Suspect]
     Active Substance: METYRAPONE
     Dosage: 250 MG BID, AND THEN TITRATED UP TO 250 MG THREE TIMES DAILY
  2. LABETALOL [Concomitant]
     Active Substance: LABETALOL\LABETALOL HYDROCHLORIDE
     Dosage: 300 MG TID
  3. LABETALOL [Concomitant]
     Active Substance: LABETALOL\LABETALOL HYDROCHLORIDE
     Dosage: 200 MG BID
  4. POTASSIUM CHLORIDE [Concomitant]
     Active Substance: POTASSIUM CHLORIDE
     Dosage: 20 MEQ TID
  5. POTASSIUM CHLORIDE [Concomitant]
     Active Substance: POTASSIUM CHLORIDE
     Dosage: 20 MEQ BID
  6. INSULIN NOS [Concomitant]
     Active Substance: INSULIN NOS
  7. HYDROCORTISONE [Concomitant]
     Active Substance: HYDROCORTISONE

REACTIONS (2)
  - Exposure during pregnancy [Recovered/Resolved]
  - Off label use [Recovered/Resolved]
